FAERS Safety Report 7386393-4 (Version None)
Quarter: 2011Q1

REPORT INFORMATION
  Report Type: 
  Country: None (occurrence: None)
  Receive Date: 20110323
  Receipt Date: 20110308
  Transmission Date: 20110831
  Serious: Yes (Hospitalization, Other)
  Sender: FDA-Public Use
  Company Number: 20100424

PATIENT
  Age: 65 Year
  Sex: Male

DRUGS (13)
  1. CLOPIDOGREL [Concomitant]
  2. SULPHATE [Concomitant]
  3. METHYLENE BLUE INJECTION, USP (0310-10) (METHYLENE BLUE) 10 MG/ML [Suspect]
     Indication: PARATHYROID DISORDER
     Dosage: 650 MG IN 500 ML ; NS(7.5 MG/KG) INTRAVENOUS DRI P
     Route: 041
  4. METHYLENE BLUE INJECTION, USP (0310-10) (METHYLENE BLUE) 10 MG/ML [Suspect]
     Indication: SCAN WITH CONTRAST
     Dosage: 650 MG IN 500 ML ; NS(7.5 MG/KG) INTRAVENOUS DRI P
     Route: 041
  5. QUININE SULFATE [Concomitant]
  6. CITALOPRAM HYDROBROMIDE [Concomitant]
  7. HYDROXIDE [Concomitant]
  8. ALFACALCIDOL [Concomitant]
  9. INSULIN [Concomitant]
  10. OMEPRAZOLE [Concomitant]
  11. SILDENAFIL [Concomitant]
  12. ALUMINIUM [Concomitant]
  13. ATORVASTATIN [Concomitant]

REACTIONS (19)
  - HYPERTHERMIA MALIGNANT [None]
  - BUNDLE BRANCH BLOCK LEFT [None]
  - TOXICITY TO VARIOUS AGENTS [None]
  - AGITATION [None]
  - LACTIC ACIDOSIS [None]
  - HAEMODIALYSIS [None]
  - DELAYED RECOVERY FROM ANAESTHESIA [None]
  - EXTRASYSTOLES [None]
  - CARDIAC OUTPUT DECREASED [None]
  - EMOTIONAL DISTRESS [None]
  - HYPERHIDROSIS [None]
  - OXYGEN SATURATION DECREASED [None]
  - DEPRESSED LEVEL OF CONSCIOUSNESS [None]
  - BLOOD POTASSIUM INCREASED [None]
  - CHILLS [None]
  - VOMITING [None]
  - CONFUSION POSTOPERATIVE [None]
  - ELECTROCARDIOGRAM ST SEGMENT DEPRESSION [None]
  - SINUS TACHYCARDIA [None]
